FAERS Safety Report 9346044 (Version 1)
Quarter: 2013Q2

REPORT INFORMATION
  Report Type: Spontaneous
  Country: US (occurrence: US)
  Receive Date: 20130613
  Receipt Date: 20130613
  Transmission Date: 20140414
  Serious: Yes (Other)
  Sender: FDA-Public Use
  Company Number: US-JNJFOC-20130603797

PATIENT
  Age: 26 Year
  Sex: Male
  Weight: 65.77 kg

DRUGS (1)
  1. LISTERINE MOUTHWASH COOLMINT [Suspect]
     Indication: PRODUCT USED FOR UNKNOWN INDICATION
     Dosage: OVER 3/4 OF THE BOTTLE
     Route: 048
     Dates: start: 20130605, end: 20130605

REACTIONS (2)
  - Loss of consciousness [Not Recovered/Not Resolved]
  - Intentional drug misuse [Unknown]
